FAERS Safety Report 20546773 (Version 1)
Quarter: 2022Q1

REPORT INFORMATION
  Report Type: Spontaneous
  Country: NL (occurrence: NL)
  Receive Date: 20220303
  Receipt Date: 20220303
  Transmission Date: 20220423
  Serious: Yes (Other)
  Sender: FDA-Public Use
  Company Number: None

PATIENT
  Age: 51 Year
  Sex: Female
  Weight: 105 kg

DRUGS (5)
  1. OXYCODONE [Suspect]
     Active Substance: OXYCODONE
     Indication: Analgesic therapy
     Dosage: 10 MILLIGRAM DAILY; BRAND NAME NOT SPECIFIED
     Route: 065
     Dates: start: 20220208, end: 20220209
  2. NORTRIPTYLINE [Concomitant]
     Active Substance: NORTRIPTYLINE
     Dosage: 50 MG, FORM STRENGTH: 50MG,THERAPY START DATE AND END DATE: ASKED BUT UNKNOWN
  3. LITHIUM CARBONATE [Concomitant]
     Active Substance: LITHIUM CARBONATE
     Dosage: 200 MG,BRAND NAME NOT SPECIFIED, FORM STRENGTH: 200MG,THERAPY START DATE AND END DATE: ASKED BUT UNK
  4. PANTOPRAZOLE SODIUM [Concomitant]
     Active Substance: PANTOPRAZOLE SODIUM
     Dosage: 20 MG,BRAND NAME NOT SPECIFIED, FORM STRENGTH: 20MG,THERAPY START DATE AND END DATE: ASKED BUT UNKNO
  5. LITHIUM [Concomitant]
     Active Substance: LITHIUM
     Dosage: 400 MG , FORM STRENGTH: 400MG,THERAPY START DATE AND END DATE: ASKED BUT UNKNOWN

REACTIONS (1)
  - Hallucination [Recovered/Resolved]

NARRATIVE: CASE EVENT DATE: 20220208
